FAERS Safety Report 16705789 (Version 1)
Quarter: 2019Q3

REPORT INFORMATION
  Report Type: Spontaneous
  Country: AT (occurrence: AT)
  Receive Date: 20190815
  Receipt Date: 20190815
  Transmission Date: 20191004
  Serious: Yes (Hospitalization)
  Sender: FDA-Public Use
  Company Number: PHHY2019AT188098

PATIENT
  Age: 47 Year
  Sex: Female
  Weight: 100 kg

DRUGS (3)
  1. EBETREXAT [Suspect]
     Active Substance: METHOTREXATE SODIUM
     Indication: STILL^S DISEASE
     Dosage: 20 MG, (10 DAY)
     Route: 058
  2. APREDNISLON [Suspect]
     Active Substance: PREDNISOLONE
     Indication: STILL^S DISEASE
     Dosage: 10 MG, QD
     Route: 065
  3. KINERET [Suspect]
     Active Substance: ANAKINRA
     Indication: STILL^S DISEASE
     Dosage: 100 MG, QD
     Route: 065

REACTIONS (2)
  - Spinal osteoarthritis [Not Recovered/Not Resolved]
  - Intervertebral disc disorder [Not Recovered/Not Resolved]

NARRATIVE: CASE EVENT DATE: 20190416
